FAERS Safety Report 4674417-4 (Version None)
Quarter: 2005Q2

REPORT INFORMATION
  Report Type: 
  Country: None (occurrence: None)
  Receive Date: 20050526
  Receipt Date: 20040520
  Transmission Date: 20051028
  Serious: Yes (Other)
  Sender: FDA-Public Use
  Company Number: PHEH2004US05576

PATIENT
  Age: 83 Year
  Sex: Female

DRUGS (4)
  1. ZOMETA [Suspect]
     Dosage: 4 MG EVERY 4 WEEKS
     Route: 042
     Dates: start: 20020128, end: 20040425
  2. DECADRON [Concomitant]
     Dosage: 4 MG, UNK
     Dates: start: 20020128
  3. TAXOTERE [Concomitant]
     Dosage: 35 MG, UNK
     Dates: start: 20020128
  4. HERCEPTIN [Concomitant]
     Indication: BREAST CANCER
     Dosage: 2 MG, UNK
     Dates: start: 20020128

REACTIONS (3)
  - ABSCESS DRAINAGE [None]
  - ANAEMIA [None]
  - OSTEONECROSIS [None]
